FAERS Safety Report 19803698 (Version 1)
Quarter: 2021Q3

REPORT INFORMATION
  Report Type: Spontaneous
  Country: US (occurrence: US)
  Receive Date: 20210902
  Receipt Date: 20210902
  Transmission Date: 20211014
  Serious: No
  Sender: FDA-Public Use
  Company Number: None

PATIENT
  Age: 60 Year
  Sex: Female

DRUGS (1)
  1. MAVYRET [Suspect]
     Active Substance: GLECAPREVIR\PIBRENTASVIR
     Dosage: ?          OTHER DOSE:100?40;?
     Route: 048
     Dates: start: 202108

REACTIONS (3)
  - Fall [None]
  - Concussion [None]
  - Memory impairment [None]

NARRATIVE: CASE EVENT DATE: 20210830
